FAERS Safety Report 6036180-4 (Version None)
Quarter: 2009Q1

REPORT INFORMATION
  Report Type: 
  Country: None (occurrence: None)
  Receive Date: 20090113
  Receipt Date: 20081211
  Transmission Date: 20090719
  Serious: Yes (Other)
  Sender: FDA-Public Use
  Company Number: US-PFIZER INC-2008152640

PATIENT
  Sex: Female
  Weight: 97.052 kg

DRUGS (1)
  1. ANIDULAFUNGIN [Suspect]
     Indication: CANDIDIASIS
     Dosage: UNK
     Route: 042
     Dates: start: 20080922

REACTIONS (3)
  - ABSCESS [None]
  - DIVERTICULAR PERFORATION [None]
  - PULMONARY EMBOLISM [None]
